FAERS Safety Report 13956315 (Version 1)
Quarter: 2017Q3

REPORT INFORMATION
  Report Type: Spontaneous
  Country: US (occurrence: US)
  Receive Date: 20170911
  Receipt Date: 20170911
  Transmission Date: 20171128
  Serious: No
  Sender: FDA-Public Use
  Company Number: US-ASTRAZENECA-2017SE28369

PATIENT
  Age: 56 Year
  Sex: Female

DRUGS (3)
  1. ALEVE [Concomitant]
     Active Substance: NAPROXEN SODIUM
     Dosage: UNK UNK, QD
     Route: 048
  2. OMNARIS [Suspect]
     Active Substance: CICLESONIDE
     Indication: SEASONAL ALLERGY
     Dosage: 1 SPRAY PER NOSTRIL, EVERY DAY
     Route: 045
  3. BENADRYL [Concomitant]
     Active Substance: DIPHENHYDRAMINE HYDROCHLORIDE
     Dosage: UNK UNK, QD
     Route: 048

REACTIONS (1)
  - Rhinalgia [Unknown]
